FAERS Safety Report 12870233 (Version 7)
Quarter: 2018Q2

REPORT INFORMATION
  Report Type: Report from Study
  Country: JP (occurrence: JP)
  Receive Date: 20161021
  Receipt Date: 20180606
  Transmission Date: 20180711
  Serious: Yes (Hospitalization, Other)
  Sender: FDA-Public Use
  Company Number: JP-AMGEN-JPNCT2016142424

PATIENT
  Age: 78 Year
  Sex: Male
  Weight: 44 kg

DRUGS (24)
  1. PANITUMUMAB [Suspect]
     Active Substance: PANITUMUMAB
     Indication: COLON CANCER
     Dosage: 250 MG, Q2WK
     Route: 041
     Dates: start: 20160908, end: 20160923
  2. HEPARIN SODIUM. [Concomitant]
     Active Substance: HEPARIN SODIUM
     Indication: CATHETER MANAGEMENT
     Dosage: 100 IU, UNK
     Route: 042
     Dates: start: 20160908
  3. FLUOROURACIL. [Suspect]
     Active Substance: FLUOROURACIL
     Dosage: 540 MG, Q2WEEKS
     Route: 040
     Dates: start: 20161020, end: 20170302
  4. CALCIUM LEVOFOLINATE [Concomitant]
     Active Substance: LEVOLEUCOVORIN CALCIUM
     Indication: COLON CANCER
     Dosage: 270 MG, Q2WEEKS
     Route: 041
     Dates: start: 20160908, end: 20160923
  5. MINOCYCLINE HYDROCHLORIDE. [Concomitant]
     Active Substance: MINOCYCLINE HYDROCHLORIDE
     Indication: PROPHYLAXIS
     Dosage: 50 MG, UNK
     Route: 048
     Dates: start: 20160908
  6. LANSOPRAZOLE. [Concomitant]
     Active Substance: LANSOPRAZOLE
     Indication: PROPHYLAXIS AGAINST GASTROINTESTINAL ULCER
     Dosage: 30 MG, UNK
     Route: 048
  7. FLUDROXYCORTIDE [Concomitant]
     Indication: PARONYCHIA
     Dosage: 4 MUG, UNK
     Route: 062
  8. FLUOROURACIL. [Suspect]
     Active Substance: FLUOROURACIL
     Dosage: 3200 MG, Q2WK
     Route: 041
     Dates: start: 20160908, end: 20160923
  9. TULOBUTEROL [Concomitant]
     Active Substance: TULOBUTEROL
     Indication: OBSTRUCTIVE AIRWAYS DISORDER
     Dosage: 2 MG, UNK
     Route: 062
     Dates: start: 20160708
  10. LAFUTIDINE [Concomitant]
     Active Substance: LAFUTIDINE
     Indication: GASTRITIS PROPHYLAXIS
  11. LAFUTIDINE [Concomitant]
     Active Substance: LAFUTIDINE
     Indication: STOMATITIS
     Dosage: 10 MG, UNK
     Route: 048
     Dates: start: 20160908
  12. LAFUTIDINE [Concomitant]
     Active Substance: LAFUTIDINE
     Indication: PROPHYLAXIS
  13. CALCIUM LEVOFOLINATE [Concomitant]
     Active Substance: LEVOLEUCOVORIN CALCIUM
     Dosage: 270 MG, Q2WEEKS
     Route: 041
     Dates: start: 20161020, end: 20170302
  14. MAGNESIUM OXIDE. [Concomitant]
     Active Substance: MAGNESIUM OXIDE
     Indication: CONSTIPATION
     Dosage: UNK
     Route: 048
  15. TRAMADOL HYDROCHLORIDE. [Concomitant]
     Active Substance: TRAMADOL HYDROCHLORIDE
     Indication: BACK PAIN
     Dosage: 100 MG, UNK
     Route: 048
  16. OXALIPLATIN. [Suspect]
     Active Substance: OXALIPLATIN
     Indication: COLON CANCER
     Dosage: 270 MG, Q2WEEKS
     Route: 041
     Dates: start: 20160908, end: 20160923
  17. OXALIPLATIN. [Suspect]
     Active Substance: OXALIPLATIN
     Dosage: 90 MG, Q2WEEKS
     Route: 041
     Dates: start: 20161201, end: 20170302
  18. LAFUTIDINE [Concomitant]
     Active Substance: LAFUTIDINE
     Indication: GASTRITIS
  19. REBAMIPIDE [Concomitant]
     Active Substance: REBAMIPIDE
     Indication: BACK PAIN
     Dosage: 100 MG, BID
     Route: 048
  20. PANITUMUMAB [Suspect]
     Active Substance: PANITUMUMAB
     Dosage: 250 MG, Q2WK
     Route: 041
     Dates: start: 20161020, end: 20170302
  21. FLUOROURACIL. [Suspect]
     Active Substance: FLUOROURACIL
     Indication: COLON CANCER
     Dosage: 540 MG, Q2WK
     Route: 040
     Dates: start: 20160908, end: 20160923
  22. FLUOROURACIL. [Suspect]
     Active Substance: FLUOROURACIL
     Dosage: 3200 MG, Q2WEEKS
     Route: 041
     Dates: start: 20161020, end: 20170304
  23. OXALIPLATIN. [Suspect]
     Active Substance: OXALIPLATIN
     Dosage: 270 MG, Q2WEEKS
     Route: 041
     Dates: start: 20161020, end: 20161117
  24. LOXOPROFEN SODIUM [Concomitant]
     Active Substance: LOXOPROFEN SODIUM
     Indication: BACK PAIN
     Dosage: 60 MG, BID
     Route: 048

REACTIONS (6)
  - Hypoxia [Recovered/Resolved]
  - Pneumonia [Recovered/Resolved]
  - C-reactive protein increased [Recovered/Resolved]
  - Paronychia [Recovering/Resolving]
  - Peripheral sensory neuropathy [Recovering/Resolving]
  - Lung disorder [Recovering/Resolving]

NARRATIVE: CASE EVENT DATE: 20161006
